FAERS Safety Report 8469514-1 (Version None)
Quarter: 2012Q2

REPORT INFORMATION
  Report Type: 
  Country: None (occurrence: None)
  Receive Date: 20120626
  Receipt Date: 20120621
  Transmission Date: 20120825
  Serious: Yes (Death, Hospitalization, Disabling)
  Sender: FDA-Public Use
  Company Number: JP-GILEAD-2007-0013950

PATIENT
  Sex: Male

DRUGS (19)
  1. CLONAZEPAM [Concomitant]
     Route: 065
     Dates: start: 20030401
  2. TENOFOVIR DISOPROXIL FUMARATE [Suspect]
     Indication: HIV INFECTION
     Route: 048
     Dates: start: 20021125
  3. KALETRA [Suspect]
     Indication: HIV INFECTION
     Dosage: 4 DF, QD
     Route: 048
     Dates: start: 20061024, end: 20081027
  4. EPIVIR [Suspect]
     Indication: HIV INFECTION
     Dosage: 300 MG, QD
     Route: 048
     Dates: start: 20010205, end: 20021123
  5. PREZISTA [Suspect]
     Indication: HIV INFECTION
     Dosage: 1200 MG, QD
     Route: 048
     Dates: start: 20081028, end: 20100518
  6. EFAVIRENZ [Suspect]
     Indication: HIV INFECTION
     Dosage: 600 MG, QD
     Route: 048
     Dates: start: 20010205, end: 20021123
  7. BUFFERIN [Concomitant]
     Route: 065
     Dates: start: 20030401
  8. PRIMIDONE [Concomitant]
     Route: 065
     Dates: start: 20060614
  9. PRIMIDONE [Concomitant]
     Route: 065
     Dates: start: 20030401, end: 20060613
  10. ANAFRANIL [Concomitant]
     Route: 065
     Dates: start: 20030401, end: 20061031
  11. KALETRA [Suspect]
     Dosage: 6 DF, QD
     Route: 048
     Dates: start: 20021124, end: 20061023
  12. RITONAVIR [Suspect]
     Indication: HIV INFECTION
     Dosage: 200 MG, QD
     Route: 048
     Dates: start: 20081028, end: 20100518
  13. BROMVALERYLUREA [Concomitant]
     Dosage: UNK
     Dates: start: 20040412, end: 20100518
  14. LOPERAMIDE HYDROCHLORIDE [Concomitant]
     Dosage: UNK
     Dates: start: 20070319, end: 20100518
  15. ZERIT [Suspect]
     Indication: HIV INFECTION
     Dosage: 80 MG, QD
     Route: 048
     Dates: start: 20010205, end: 20021123
  16. GANATON [Concomitant]
     Dosage: UNK
     Dates: start: 20090120, end: 20100518
  17. DEPAKENE [Concomitant]
     Dosage: UNK
     Dates: start: 20090729, end: 20100518
  18. LAC B [Concomitant]
     Route: 065
     Dates: start: 20030401, end: 20070319
  19. MERISLON [Concomitant]
     Dosage: UNK
     Dates: start: 20081006, end: 20100518

REACTIONS (3)
  - EPILEPSY [None]
  - OSTEONECROSIS [None]
  - EXTRADURAL HAEMATOMA [None]
